FAERS Safety Report 8276197-2 (Version None)
Quarter: 2012Q2

REPORT INFORMATION
  Report Type: 
  Country: None (occurrence: None)
  Receive Date: 20120412
  Receipt Date: 20120404
  Transmission Date: 20120825
  Serious: Yes (Hospitalization)
  Sender: FDA-Public Use
  Company Number: JP-ASTELLAS-2012US003304

PATIENT
  Weight: 48 kg

DRUGS (17)
  1. RISEDRONATE SODIUM [Concomitant]
     Indication: OSTEOPOROSIS
     Dosage: 17.5 MG, WEEKLY
     Route: 048
  2. HIRUDOID [Concomitant]
     Indication: DRY SKIN
     Dosage: 1 DF, UNKNOWN/D
     Route: 062
     Dates: start: 20110506
  3. CANDESARTAN CILEXETIL [Concomitant]
     Indication: HYPERTENSION
     Dosage: 4 MG, UID/QD
     Route: 048
     Dates: start: 20111116
  4. BECLOMETHASONE DIPROPIONATE [Concomitant]
     Indication: NASAL DRYNESS
     Dosage: 1 DF, UNKNOWN/D
     Route: 045
     Dates: start: 20110525
  5. MUCOSTA [Concomitant]
     Indication: GASTRITIS
     Dosage: 100 MG, QID
     Route: 048
  6. EPINASTINE HYDROCHLORIDE [Concomitant]
     Indication: DERMATITIS ACNEIFORM
     Dosage: 20 MG, UID/QD
     Route: 048
  7. HEPARIN [Concomitant]
     Indication: DRY SKIN
     Dosage: 1 DF, UNKNOWN/D
     Route: 062
     Dates: start: 20110506
  8. LOXOPROFEN [Concomitant]
     Indication: BACK PAIN
     Dosage: 60 MG, QID
     Route: 048
     Dates: start: 20111214
  9. DIAZEPAM [Concomitant]
     Indication: INSOMNIA
     Dosage: 2 MG, UID/QD
     Route: 048
  10. ERLOTINIB HYDROCHLORIDE [Suspect]
     Indication: NON-SMALL CELL LUNG CANCER
     Dosage: 150 MG, UID/QD
     Route: 048
     Dates: start: 20110420, end: 20120326
  11. ERLOTINIB HYDROCHLORIDE [Suspect]
     Dosage: 150 MG, UID/QD
     Route: 048
     Dates: start: 20120403
  12. ALFAROL [Concomitant]
     Indication: OSTEOPOROSIS
     Dosage: 1 UG, UID/QD
     Route: 048
  13. PYDOXAL [Concomitant]
     Indication: DERMATITIS ACNEIFORM
     Dosage: 10 MG, TID
     Route: 048
     Dates: start: 20110506
  14. ISODINE [Concomitant]
     Indication: STOMATITIS
     Dosage: UNK
     Route: 049
  15. SANCOBA [Concomitant]
     Indication: VISION BLURRED
     Dosage: 1 DF, TID
     Route: 047
     Dates: start: 20110525
  16. LANSOPRAZOLE [Concomitant]
     Indication: DYSPEPSIA
     Dosage: 15 MG, UID/QD
     Route: 048
     Dates: start: 20111026
  17. RIBOFLAVIN TAB [Concomitant]
     Indication: DERMATITIS ACNEIFORM
     Dosage: 20 MG, TID
     Route: 048
     Dates: start: 20110506

REACTIONS (1)
  - POLYMYALGIA RHEUMATICA [None]
